FAERS Safety Report 6335061-6 (Version None)
Quarter: 2009Q3

REPORT INFORMATION
  Report Type: 
  Country: None (occurrence: None)
  Receive Date: 20090831
  Receipt Date: 20090827
  Transmission Date: 20100115
  Serious: Yes (Hospitalization)
  Sender: FDA-Public Use
  Company Number: A0803646A

PATIENT
  Sex: Female
  Weight: 79 kg

DRUGS (4)
  1. ELTROMBOPAG [Suspect]
     Indication: THROMBOCYTOPENIA
     Dosage: 100MG PER DAY
     Route: 048
     Dates: start: 20090622
  2. PEGASYS [Suspect]
     Dosage: 180MCG WEEKLY
     Route: 058
     Dates: start: 20090622
  3. COPEGUS [Suspect]
     Route: 048
     Dates: start: 20090622
  4. ELTROMBOPAG [Suspect]
     Route: 048
     Dates: start: 20090420, end: 20090621

REACTIONS (3)
  - DYSPNOEA [None]
  - PANCYTOPENIA [None]
  - PYREXIA [None]
